FAERS Safety Report 23387559 (Version 1)
Quarter: 2024Q1

REPORT INFORMATION
  Report Type: Report from Study
  Country: US (occurrence: US)
  Receive Date: 20240110
  Receipt Date: 20240110
  Transmission Date: 20240410
  Serious: Yes (Hospitalization)
  Sender: FDA-Public Use
  Company Number: US-VERTEX PHARMACEUTICALS-2024-000154

PATIENT
  Age: 34 Year
  Sex: Female

DRUGS (39)
  1. TRIKAFTA [Suspect]
     Active Substance: ELEXACAFTOR\IVACAFTOR\TEZACAFTOR
     Indication: Cystic fibrosis
     Dosage: 2 ORANGE TABLETS IN THE MORNING AND 1 BLUE TABLET IN THE EVENING
     Route: 048
     Dates: start: 20200120
  2. DULOXETINE [Concomitant]
     Active Substance: DULOXETINE
  3. LOSARTAN [Concomitant]
     Active Substance: LOSARTAN
  4. CAYSTON [Concomitant]
     Active Substance: AZTREONAM
     Dosage: INH SOL/DILUENT 84VIAL
  5. TACROLIMUS [Concomitant]
     Active Substance: TACROLIMUS
     Dosage: 5 MG
  6. TACROLIMUS [Concomitant]
     Active Substance: TACROLIMUS
     Dosage: 0.5 MG
  7. TACROLIMUS [Concomitant]
     Active Substance: TACROLIMUS
     Dosage: 1 MG
  8. TIZANIDINE [Concomitant]
     Active Substance: TIZANIDINE
  9. VITAMIN E [Concomitant]
     Active Substance: .ALPHA.-TOCOPHEROL
     Dosage: 400IU CAPSULES
  10. FIASP [Concomitant]
     Active Substance: INSULIN ASPART
     Route: 042
  11. HYDROMORPHONE HCL [Concomitant]
     Active Substance: HYDROMORPHONE HYDROCHLORIDE
  12. INSULIN NOS [Concomitant]
     Active Substance: INSULIN NOS
     Dosage: 31GX6MM
  13. DUONEB [Concomitant]
     Active Substance: ALBUTEROL SULFATE\IPRATROPIUM BROMIDE
     Dosage: 3 MILLILITER
  14. CLONAZEPAM [Concomitant]
     Active Substance: CLONAZEPAM
  15. DOCUSATE SODIUM [Concomitant]
     Active Substance: DOCUSATE SODIUM
  16. FEXOFENADINE [Concomitant]
     Active Substance: FEXOFENADINE HYDROCHLORIDE
  17. GLUCAGON [Concomitant]
     Active Substance: GLUCAGON\GLUCAGON HYDROCHLORIDE\WATER
     Dosage: 1 VL
  18. CALCIUM CITRATE [Concomitant]
     Active Substance: CALCIUM CITRATE
  19. CLINDAMYCIN [Concomitant]
     Active Substance: CLINDAMYCIN
  20. VITAMIN C [Concomitant]
     Active Substance: ASCORBIC ACID
  21. FORTEO [Concomitant]
     Active Substance: TERIPARATIDE
     Dosage: PEN (20MCG/DOSE) 28DOSE
  22. BASAGLAR KWIKPEN [Concomitant]
     Active Substance: INSULIN GLARGINE
     Dosage: 100 U/ML
  23. GABAPENTIN [Concomitant]
     Active Substance: GABAPENTIN
  24. MYCOPHENOLIC ACID [Concomitant]
     Active Substance: MYCOPHENOLIC ACID
  25. ATROVENT HFA [Concomitant]
     Active Substance: IPRATROPIUM BROMIDE
     Dosage: 200 INH
  26. VITAMIN D2 [Concomitant]
     Active Substance: ERGOCALCIFEROL
     Dosage: 50,000IU
  27. FLONASE SENSIMIST ALLERGY RELIEF [Concomitant]
     Active Substance: FLUTICASONE FUROATE
  28. SODIUM CHLORIDE [Concomitant]
     Active Substance: SODIUM CHLORIDE
     Dosage: SOL 30X4ML
     Route: 055
  29. FLUDROCORTISONE [Concomitant]
     Active Substance: FLUDROCORTISONE
  30. SERTRALINE [Concomitant]
     Active Substance: SERTRALINE HYDROCHLORIDE
  31. FAMOTIDINE [Concomitant]
     Active Substance: FAMOTIDINE
  32. FERROUS SULFATE [Concomitant]
     Active Substance: FERROUS SULFATE
  33. GRANISETRON [Concomitant]
     Active Substance: GRANISETRON
  34. SULFAMETHOXAZOLE AND TRIMETHOPRIM [Concomitant]
     Active Substance: SULFAMETHOXAZOLE\TRIMETHOPRIM
     Dosage: 800/160MG TB
  35. TRAMADOL [Concomitant]
     Active Substance: TRAMADOL\TRAMADOL HYDROCHLORIDE
  36. URSODIOL [Concomitant]
     Active Substance: URSODIOL
  37. AMLODIPINE BESYLATE [Concomitant]
     Active Substance: AMLODIPINE BESYLATE
  38. PREDNISONE [Concomitant]
     Active Substance: PREDNISONE
  39. PROCHLORPERAZINE [Concomitant]
     Active Substance: PROCHLORPERAZINE

REACTIONS (1)
  - COVID-19 [Recovered/Resolved]

NARRATIVE: CASE EVENT DATE: 20231226
